FAERS Safety Report 20852848 (Version 3)
Quarter: 2022Q2

REPORT INFORMATION
  Report Type: Report from Study
  Country: FR (occurrence: None)
  Receive Date: 20220520
  Receipt Date: 20220527
  Transmission Date: 20220721
  Serious: Yes (Hospitalization)
  Sender: FDA-Public Use
  Company Number: FR-Eisai Medical Research-EC-2022-115106

PATIENT
  Age: 66 Year
  Sex: Male
  Weight: 67 kg

DRUGS (10)
  1. LENVATINIB [Suspect]
     Active Substance: LENVATINIB
     Indication: Renal cell carcinoma
     Route: 048
     Dates: start: 20220428, end: 20220512
  2. FAVEZELIMAB [Suspect]
     Active Substance: FAVEZELIMAB
     Indication: Renal cell carcinoma
     Dosage: MK 4280A (800 MG MK04280 AND 200 MG MK-3475)
     Route: 042
     Dates: start: 20220505, end: 20220505
  3. LIDOCAINE [Concomitant]
     Active Substance: LIDOCAINE
     Dates: start: 20220425
  4. ACETAMINOPHEN [Concomitant]
     Active Substance: ACETAMINOPHEN
     Dates: start: 20220425
  5. IMOVANE [Concomitant]
     Active Substance: ZOPICLONE
     Dates: start: 20220428
  6. MORPHINE SULFATE [Concomitant]
     Active Substance: MORPHINE SULFATE
     Dates: start: 20220505
  7. PRIMPERAN [Concomitant]
     Active Substance: METOCLOPRAMIDE HYDROCHLORIDE
     Dates: start: 20220505
  8. SKENAN [Concomitant]
     Active Substance: MORPHINE SULFATE
     Dates: start: 20220505
  9. POLYETHYLENE GLYCOL 4000 [Concomitant]
     Active Substance: POLYETHYLENE GLYCOL 4000
     Dates: start: 20220505
  10. PEMBROLIZUMAB [Suspect]
     Active Substance: PEMBROLIZUMAB

REACTIONS (1)
  - Tonsillitis bacterial [Not Recovered/Not Resolved]

NARRATIVE: CASE EVENT DATE: 20220512
